FAERS Safety Report 10206158 (Version 1)
Quarter: 2014Q2

REPORT INFORMATION
  Report Type: Spontaneous
  Country: US (occurrence: US)
  Receive Date: 20140530
  Receipt Date: 20140530
  Transmission Date: 20141212
  Serious: No
  Sender: FDA-Public Use
  Company Number: US-PFIZER INC-2014147882

PATIENT
  Sex: 0

DRUGS (3)
  1. IBUPROFEN [Suspect]
     Indication: FIBROMYALGIA
     Dosage: UNK
  2. IBUPROFEN [Suspect]
     Indication: PAIN
  3. TYLENOL [Suspect]
     Indication: PAIN
     Dosage: UNK

REACTIONS (1)
  - Drug effect incomplete [Unknown]
